FAERS Safety Report 5008240-8 (Version None)
Quarter: 2006Q2

REPORT INFORMATION
  Report Type: 
  Country: None (occurrence: None)
  Receive Date: 20060523
  Receipt Date: 20060510
  Transmission Date: 20061013
  Serious: Yes (Hospitalization)
  Sender: FDA-Public Use
  Company Number: 2006SE02749

PATIENT
  Sex: Female

DRUGS (1)
  1. ATENOLOL [Suspect]

REACTIONS (3)
  - ASTHENIA [None]
  - DYSPNOEA EXERTIONAL [None]
  - SINUS BRADYCARDIA [None]
